FAERS Safety Report 24717904 (Version 1)
Quarter: 2024Q4

REPORT INFORMATION
  Report Type: Report from Study
  Country: US (occurrence: US)
  Receive Date: 20241210
  Receipt Date: 20241210
  Transmission Date: 20250114
  Serious: Yes (Other)
  Sender: AMGEN
  Company Number: US-AMGEN-USASL2024239468

PATIENT
  Age: 62 Year
  Sex: Male

DRUGS (1)
  1. TEPEZZA [Suspect]
     Active Substance: TEPROTUMUMAB-TRBW
     Indication: Product used for unknown indication
     Dosage: UNK
     Route: 040
     Dates: end: 202405

REACTIONS (8)
  - Endocrine ophthalmopathy [Unknown]
  - Hypothyroidism [Unknown]
  - Alopecia [Unknown]
  - Onychomalacia [Unknown]
  - Influenza like illness [Unknown]
  - Insomnia [Unknown]
  - Glucose tolerance impaired [Unknown]
  - Madarosis [Unknown]
